FAERS Safety Report 19818735 (Version 1)
Quarter: 2021Q3

REPORT INFORMATION
  Report Type: Spontaneous
  Country: CA (occurrence: CA)
  Receive Date: 20210912
  Receipt Date: 20210912
  Transmission Date: 20211014
  Serious: Yes (Other)
  Sender: FDA-Public Use
  Company Number: CA-TEVA-2021-CA-1951096

PATIENT
  Age: 70 Year
  Sex: Female

DRUGS (15)
  1. PACLITAXEL INJECTION [Concomitant]
     Active Substance: PACLITAXEL
  2. VITAMIN C [Concomitant]
     Active Substance: ASCORBIC ACID
  3. DEXAMETHASONE. [Concomitant]
     Active Substance: DEXAMETHASONE
     Route: 065
  4. TYLENOL WITH CODEINE#3 [Concomitant]
  5. VITAMIN D [Concomitant]
     Active Substance: VITAMIN D NOS
  6. LORAZEPAM. [Concomitant]
     Active Substance: LORAZEPAM
  7. MAGNESIUM [Concomitant]
     Active Substance: MAGNESIUM
  8. SENOKOT [Concomitant]
     Active Substance: SENNOSIDES
  9. DIPHENHYDRAMINE. [Concomitant]
     Active Substance: DIPHENHYDRAMINE
  10. GRANISETRON [Concomitant]
     Active Substance: GRANISETRON
  11. RANITIDINE. [Concomitant]
     Active Substance: RANITIDINE
  12. ACETAMINOPHENW/ASPIRIN/CAFFEINE [Concomitant]
  13. RESTORALAX [Concomitant]
     Active Substance: POLYETHYLENE GLYCOL 3350
  14. DOSTARLIMAB [Concomitant]
     Active Substance: DOSTARLIMAB
  15. CARBOPLATIN INJECTION? LIQ IV 10MG/ML [Suspect]
     Active Substance: CARBOPLATIN
     Route: 065

REACTIONS (6)
  - Abdominal discomfort [Recovered/Resolved]
  - Nasal congestion [Recovered/Resolved]
  - Flushing [Recovered/Resolved]
  - Rash macular [Recovered/Resolved]
  - Oxygen saturation decreased [Recovered/Resolved]
  - Sensation of foreign body [Recovered/Resolved]
